FAERS Safety Report 5496999-5 (Version None)
Quarter: 2007Q4

REPORT INFORMATION
  Report Type: 
  Country: None (occurrence: None)
  Receive Date: 20071025
  Receipt Date: 20071009
  Transmission Date: 20080405
  Serious: No
  Sender: FDA-Public Use
  Company Number: BR-ELI_LILLY_AND_COMPANY-BR200710006007

PATIENT
  Sex: Female
  Weight: 90 kg

DRUGS (2)
  1. ZYPREXA [Suspect]
     Indication: SCHIZOPHRENIA
     Dosage: 10 MG, 2/D
     Route: 048
     Dates: start: 20020101
  2. PROPRANOLOL [Concomitant]
     Indication: HEART RATE
     Dosage: 10 MG, UNKNOWN
     Route: 065
     Dates: start: 20020101

REACTIONS (2)
  - FALL [None]
  - HAEMATOMA [None]
